FAERS Safety Report 9792544 (Version 2)
Quarter: 2020Q1

REPORT INFORMATION
  Report Type: Spontaneous
  Country: US (occurrence: US)
  Receive Date: 20140102
  Receipt Date: 20200121
  Transmission Date: 20200409
  Serious: No
  Sender: FDA-Public Use
  Company Number: US-SA-2013SA095132

PATIENT
  Sex: Female

DRUGS (1)
  1. AUBAGIO [Suspect]
     Active Substance: TERIFLUNOMIDE
     Indication: MULTIPLE SCLEROSIS
     Dosage: 14 MG,QD
     Route: 048

REACTIONS (4)
  - Skin discolouration [Not Recovered/Not Resolved]
  - Skin irritation [Unknown]
  - Rash papular [Recovered/Resolved]
  - Rash [Unknown]
